FAERS Safety Report 13166637 (Version 1)
Quarter: 2017Q1

REPORT INFORMATION
  Report Type: Spontaneous
  Country: US (occurrence: US)
  Receive Date: 20170126
  Receipt Date: 20170126
  Transmission Date: 20170428
  Serious: Yes (Other)
  Sender: FDA-Public Use
  Company Number: None

PATIENT
  Age: 33 Year
  Sex: Female
  Weight: 58.5 kg

DRUGS (3)
  1. VIVITROL [Suspect]
     Active Substance: NALTREXONE
     Indication: NAUSEA
     Route: 048
  2. EMETROL [Suspect]
     Active Substance: DEXTROSE\FRUCTOSE\PHOSPHORIC ACID
  3. VIVITROL [Suspect]
     Active Substance: NALTREXONE
     Indication: VOMITING
     Route: 048

REACTIONS (1)
  - Urine alcohol test positive [None]

NARRATIVE: CASE EVENT DATE: 20161127
